FAERS Safety Report 14781546 (Version 1)
Quarter: 2018Q2

REPORT INFORMATION
  Report Type: Spontaneous
  Country: CA (occurrence: CA)
  Receive Date: 20180420
  Receipt Date: 20180420
  Transmission Date: 20180711
  Serious: Yes (Other)
  Sender: FDA-Public Use
  Company Number: CA-TEVA-2018-CA-882813

PATIENT
  Age: 75 Year
  Sex: Male

DRUGS (4)
  1. CITALOPRAM [Concomitant]
     Active Substance: CITALOPRAM HYDROBROMIDE
  2. MIRTAZAPINE. [Suspect]
     Active Substance: MIRTAZAPINE
     Route: 048
  3. AVODART [Concomitant]
     Active Substance: DUTASTERIDE
  4. ALPRAZOLAM. [Concomitant]
     Active Substance: ALPRAZOLAM

REACTIONS (6)
  - Nervousness [Unknown]
  - Constipation [Unknown]
  - Restlessness [Unknown]
  - Blood pressure increased [Unknown]
  - Mental impairment [Unknown]
  - Confusional state [Unknown]
